FAERS Safety Report 14025727 (Version 1)
Quarter: 2017Q3

REPORT INFORMATION
  Report Type: Spontaneous
  Country: US (occurrence: US)
  Receive Date: 20170929
  Receipt Date: 20170929
  Transmission Date: 20171128
  Serious: No
  Sender: FDA-Public Use
  Company Number: US-009507513-1709USA007930

PATIENT
  Sex: Female

DRUGS (3)
  1. CLARINEX [Suspect]
     Active Substance: DESLORATADINE
     Indication: ASTHMA
     Dosage: UNK
     Route: 048
     Dates: end: 20170906
  2. SINGULAIR [Concomitant]
     Active Substance: MONTELUKAST SODIUM
     Dosage: UNK
     Route: 048
  3. CLARINEX [Suspect]
     Active Substance: DESLORATADINE
     Indication: HYPERSENSITIVITY

REACTIONS (3)
  - Hypersensitivity [Unknown]
  - Drug dose omission [Unknown]
  - Asthma [Unknown]

NARRATIVE: CASE EVENT DATE: 20170906
